FAERS Safety Report 6959497-5 (Version None)
Quarter: 2010Q3

REPORT INFORMATION
  Report Type: 
  Country: None (occurrence: None)
  Receive Date: 20100827
  Receipt Date: 20100818
  Transmission Date: 20110219
  Serious: Yes (Hospitalization)
  Sender: FDA-Public Use
  Company Number: 2010US002742

PATIENT
  Age: 77 Year
  Sex: Female
  Weight: 97 kg

DRUGS (13)
  1. PROGRAF [Suspect]
     Indication: RENAL TRANSPLANT
     Dosage: 6 MG, BID, ORAL
     Route: 048
     Dates: start: 20020501
  2. METOPROLOL SUCCINATE [Concomitant]
  3. PLAVIX [Concomitant]
  4. PREDNISONE [Concomitant]
  5. IMURAN [Concomitant]
  6. HYDROCHLOROTHIAZIDE [Concomitant]
  7. ISOSORBIDE (ISOSORBIDE) [Concomitant]
  8. PAXIL [Concomitant]
  9. ELAVIL [Concomitant]
  10. METHADONE HCL [Concomitant]
  11. ISORDIL [Concomitant]
  12. ISOSORBIDE MONONITRATE [Concomitant]
  13. ESTROGENS SOL/INJ [Concomitant]

REACTIONS (5)
  - ALCOHOL ABUSE [None]
  - CONDITION AGGRAVATED [None]
  - DIARRHOEA [None]
  - GASTROENTERITIS VIRAL [None]
  - VASCULAR DEMENTIA [None]
